FAERS Safety Report 10216900 (Version 1)
Quarter: 2014Q2

REPORT INFORMATION
  Report Type: Spontaneous
  Country: CN (occurrence: CN)
  Receive Date: 20140604
  Receipt Date: 20140604
  Transmission Date: 20141212
  Serious: Yes (Hospitalization, Other)
  Sender: FDA-Public Use
  Company Number: CN-ASTRAZENECA-2014SE37325

PATIENT
  Age: 65 Year
  Sex: Female

DRUGS (12)
  1. IMDUR [Suspect]
     Indication: CORONARY ARTERY DISEASE
     Route: 048
  2. BETALOC ZOK [Suspect]
     Indication: CORONARY ARTERY DISEASE
     Route: 048
  3. BAYASPIRIN [Concomitant]
     Indication: CORONARY ARTERY DISEASE
     Route: 048
  4. LIPITOR [Concomitant]
     Indication: HYPERLIPIDAEMIA
     Route: 048
  5. NORVASC [Concomitant]
     Indication: HYPERTENSION
     Route: 048
  6. IRBESARTAN AND HYDROCHLOROTHIAZIDE [Concomitant]
     Indication: HYPERTENSION
     Route: 048
  7. NATEGLINIDE [Concomitant]
     Indication: DIABETES MELLITUS
     Route: 048
  8. ACESODYNE [Concomitant]
     Indication: PAIN IN EXTREMITY
  9. CLOPIDOGREL BISULFATE [Concomitant]
     Dates: start: 201309
  10. CLOPIDOGREL BISULFATE [Concomitant]
     Dates: start: 2014
  11. CLOPIDOGREL BISULFATE [Concomitant]
     Dates: start: 2014
  12. CLOPIDOGREL BISULFATE [Concomitant]
     Dosage: PLAVIX, 1 DF DAILY

REACTIONS (4)
  - Gastric haemorrhage [Unknown]
  - Acute coronary syndrome [Unknown]
  - Ecchymosis [Recovering/Resolving]
  - Haemorrhage subcutaneous [Recovering/Resolving]
